FAERS Safety Report 4635224-1 (Version None)
Quarter: 2005Q2

REPORT INFORMATION
  Report Type: 
  Country: None (occurrence: None)
  Receive Date: 20050414
  Receipt Date: 20050406
  Transmission Date: 20051028
  Serious: Yes (Hospitalization)
  Sender: FDA-Public Use
  Company Number: US-KINGPHARMUSA00001-K200500470

PATIENT
  Age: 85 Year
  Sex: Male

DRUGS (12)
  1. ALTACE [Suspect]
     Indication: HYPERTENSION
     Dosage: 2.5 MG, QD
     Route: 048
  2. SECTRAL ^AKITA^ [Suspect]
     Indication: HYPERTENSION
     Dosage: 200 MG, QD
     Route: 048
     Dates: start: 19960101
  3. ESIDRIX [Suspect]
     Dosage: 50 MG, QD
     Route: 048
     Dates: start: 20030101
  4. AMLOR [Suspect]
     Indication: HYPERTENSION
     Dosage: 10 MG, QD
     Route: 048
  5. HYPERIUM [Suspect]
     Indication: HYPERTENSION
     Dosage: 1 MG, QD
     Route: 048
  6. JOSIR [Suspect]
     Dosage: .4 MG, QD
     Route: 048
     Dates: start: 20040715, end: 20050201
  7. CORTANCYL [Concomitant]
     Route: 048
  8. PLAVIX [Concomitant]
     Route: 048
  9. BETASERC [Concomitant]
  10. ACTONEL [Concomitant]
     Route: 048
  11. AVODART [Concomitant]
     Route: 048
  12. MIXTARD HUMAN 70/30 [Concomitant]
     Indication: DIABETES MELLITUS NON-INSULIN-DEPENDENT
     Dosage: UNK, UNK
     Route: 058
     Dates: start: 20050101

REACTIONS (10)
  - ANAEMIA [None]
  - BRADYCARDIA [None]
  - CONTUSION [None]
  - DRUG INTERACTION [None]
  - FALL [None]
  - HEAD INJURY [None]
  - LOSS OF CONSCIOUSNESS [None]
  - MALAISE [None]
  - ORTHOSTATIC HYPOTENSION [None]
  - RENAL FAILURE [None]
